FAERS Safety Report 7559478-7 (Version None)
Quarter: 2011Q2

REPORT INFORMATION
  Report Type: 
  Country: None (occurrence: None)
  Receive Date: 20110613
  Receipt Date: 20110608
  Transmission Date: 20111010
  Serious: Yes (Other)
  Sender: FDA-Public Use
  Company Number: 1000021364

PATIENT
  Age: 65 Year
  Sex: Female

DRUGS (1)
  1. BYSTOLIC [Suspect]
     Indication: HYPERTENSION
     Dates: start: 20100101, end: 20110101

REACTIONS (5)
  - MYALGIA [None]
  - ARRHYTHMIA [None]
  - HEART RATE DECREASED [None]
  - SICK SINUS SYNDROME [None]
  - DIZZINESS [None]
